FAERS Safety Report 8036713-2 (Version None)
Quarter: 2012Q1

REPORT INFORMATION
  Report Type: 
  Country: None (occurrence: None)
  Receive Date: 20120111
  Receipt Date: 20110520
  Transmission Date: 20120608
  Serious: Yes (Other)
  Sender: FDA-Public Use
  Company Number: US-ROCHE-1028950

PATIENT

DRUGS (2)
  1. AVASTIN [Suspect]
     Indication: HEPATIC NEOPLASM MALIGNANT
     Dosage: ON DAY 1 AND DAY 15
     Route: 065
  2. SORAFENIB [Suspect]
     Indication: HEPATIC NEOPLASM MALIGNANT
     Route: 065

REACTIONS (9)
  - HYPONATRAEMIA [None]
  - VOMITING [None]
  - BLOOD CREATININE INCREASED [None]
  - HYPOGLYCAEMIA [None]
  - DEHYDRATION [None]
  - ASPARTATE AMINOTRANSFERASE INCREASED [None]
  - HYPOPHOSPHATAEMIA [None]
  - NAUSEA [None]
  - ALANINE AMINOTRANSFERASE INCREASED [None]
